FAERS Safety Report 7051781-2 (Version None)
Quarter: 2010Q4

REPORT INFORMATION
  Report Type: 
  Country: None (occurrence: None)
  Receive Date: 20101019
  Receipt Date: 20101013
  Transmission Date: 20110411
  Serious: Yes (Hospitalization)
  Sender: FDA-Public Use
  Company Number: FR-ROCHE-733614

PATIENT
  Sex: Male

DRUGS (16)
  1. ROCEPHIN [Suspect]
     Route: 042
     Dates: start: 20100124, end: 20100128
  2. BACTRIM [Suspect]
     Dosage: ROUTE: ORAL
     Route: 042
     Dates: start: 20100129, end: 20100130
  3. BACTRIM [Suspect]
     Route: 042
     Dates: start: 20100130, end: 20100208
  4. BACTRIM DS [Suspect]
     Indication: PLEURISY
     Route: 048
     Dates: start: 20100219, end: 20100223
  5. AMIKIN [Suspect]
     Route: 042
     Dates: start: 20100126, end: 20100130
  6. GARDENAL [Concomitant]
     Dosage: LONG TERM
     Route: 048
  7. CITALOPRAM HYDROBROMIDE [Concomitant]
     Dosage: LONG TERM
     Route: 048
  8. DIPIPERON [Concomitant]
     Dosage: STRENGTH 40MG/ML; LONG TERM
     Route: 048
  9. EQUANIL [Concomitant]
     Dosage: EQUANIL 400; 1 DF AT BEDTIME
     Route: 048
  10. EQUANIL [Concomitant]
     Dosage: EQUANIL 250;1 DF IN MORNING AND 1 IN EVENING
     Route: 048
  11. MODECATE [Concomitant]
     Dosage: LONG TERM; STRENGTH:25MG/ML AMPULE
     Route: 030
  12. LEPTICUR [Concomitant]
     Dosage: STRENGTH 10MG/2ML;LONG TERM
     Route: 030
  13. RIVOTRIL [Concomitant]
     Dosage: IN CRISIS
     Route: 030
  14. SPECIAFOLDINE [Concomitant]
     Dosage: 1 IN THE MORNING AND 1 IN EVE
     Route: 048
  15. PYOSTACINE [Concomitant]
     Route: 048
     Dates: start: 20100208, end: 20100225
  16. VANCOMYCIN HCL [Concomitant]
     Indication: PLEURISY
     Dates: start: 20100217

REACTIONS (2)
  - CELL DEATH [None]
  - CHOLESTASIS [None]
